FAERS Safety Report 18056304 (Version 1)
Quarter: 2020Q3

REPORT INFORMATION
  Report Type: Spontaneous
  Country: BR (occurrence: BR)
  Receive Date: 20200722
  Receipt Date: 20200722
  Transmission Date: 20201103
  Serious: Yes (Other)
  Sender: FDA-Public Use
  Company Number: BR-JNJFOC-20200724121

PATIENT
  Age: 49 Year
  Sex: Male
  Weight: 95 kg

DRUGS (3)
  1. SIMPONI [Suspect]
     Active Substance: GOLIMUMAB
     Indication: PSORIASIS
     Route: 058
     Dates: end: 20200506
  2. ADALIMUMAB [Concomitant]
     Active Substance: ADALIMUMAB
  3. SECUKINUMAB. [Concomitant]
     Active Substance: SECUKINUMAB

REACTIONS (5)
  - Arrhythmia [Not Recovered/Not Resolved]
  - Nervousness [Not Recovered/Not Resolved]
  - Off label use [Unknown]
  - Product use issue [Unknown]
  - Psoriasis [Not Recovered/Not Resolved]
